FAERS Safety Report 7076689-8 (Version None)
Quarter: 2010Q4

REPORT INFORMATION
  Report Type: 
  Country: None (occurrence: None)
  Receive Date: 20101101
  Receipt Date: 20101027
  Transmission Date: 20110411
  Serious: No
  Sender: FDA-Public Use
  Company Number: US-PFIZER INC-2010137208

PATIENT
  Sex: Female
  Weight: 45.351 kg

DRUGS (2)
  1. ZYVOX [Suspect]
     Indication: STAPHYLOCOCCAL ABSCESS
     Dosage: 600 MG, 2X/DAY
     Dates: start: 20101012, end: 20101022
  2. MONTELUKAST [Concomitant]
     Indication: ASTHMA
     Dosage: 5 MG, 1X/DAY
     Route: 048

REACTIONS (1)
  - URTICARIA [None]
